FAERS Safety Report 5481082-5 (Version None)
Quarter: 2007Q4

REPORT INFORMATION
  Report Type: 
  Country: None (occurrence: None)
  Receive Date: 20071009
  Receipt Date: 20071001
  Transmission Date: 20080405
  Serious: Yes (Other)
  Sender: FDA-Public Use
  Company Number: US-PFIZER INC-2007082249

PATIENT

DRUGS (6)
  1. VIRACEPT [Suspect]
     Dosage: DAILY DOSE:2500MEQ
     Route: 048
     Dates: start: 20070530, end: 20070618
  2. TRIZIVIR [Suspect]
     Dosage: TEXT:600/600/300
     Route: 048
     Dates: start: 20070530, end: 20070618
  3. EFAVIRENZ [Suspect]
     Dosage: DAILY DOSE:600MG
     Route: 048
  4. EFAVIRENZ [Suspect]
     Dosage: TEXT:600/300 MG
     Route: 048
  5. EPZICOM [Suspect]
     Dosage: TEXT:600/300 MG
     Route: 048
  6. EPZICOM [Suspect]
     Dosage: TEXT:600/300 MG
     Route: 048

REACTIONS (1)
  - ABORTION SPONTANEOUS [None]
